FAERS Safety Report 12405999 (Version 1)
Quarter: 2016Q2

REPORT INFORMATION
  Report Type: Spontaneous
  Country: US (occurrence: None)
  Receive Date: 20160525
  Receipt Date: 20160525
  Transmission Date: 20160815
  Serious: Yes (Other)
  Sender: FDA-Public Use
  Company Number: None

PATIENT
  Age: 65 Year
  Sex: Female
  Weight: 86.18 kg

DRUGS (15)
  1. AMARYL [Concomitant]
     Active Substance: GLIMEPIRIDE
  2. NORVASC [Concomitant]
     Active Substance: AMLODIPINE BESYLATE
  3. LISINOPRIL. [Concomitant]
     Active Substance: LISINOPRIL
  4. PAXIL [Concomitant]
     Active Substance: PAROXETINE HYDROCHLORIDE
  5. AMITRYPTILLINE [Concomitant]
     Active Substance: AMITRIPTYLINE
  6. TIZANIDINE. [Concomitant]
     Active Substance: TIZANIDINE
  7. LEVEMIR [Suspect]
     Active Substance: INSULIN DETEMIR
     Indication: TYPE 2 DIABETES MELLITUS
     Dates: start: 20010523, end: 20010523
  8. ATROVASTATIN [Concomitant]
     Active Substance: ATORVASTATIN CALCIUM
  9. KRILL OIL [Concomitant]
     Active Substance: DIETARY SUPPLEMENT
  10. GARLIC. [Concomitant]
     Active Substance: GARLIC
  11. ASPIRIN. [Concomitant]
     Active Substance: ASPIRIN
  12. OXYCODONE [Concomitant]
     Active Substance: OXYCODONE
  13. MULTIVITAMIN [Concomitant]
     Active Substance: VITAMINS
  14. TERAZADONE [Concomitant]
  15. NOVOLOG [Concomitant]
     Active Substance: INSULIN ASPART

REACTIONS (4)
  - Drug ineffective [None]
  - Palpitations [None]
  - Blood glucose increased [None]
  - Dizziness [None]

NARRATIVE: CASE EVENT DATE: 20160523
